FAERS Safety Report 17134284 (Version 1)
Quarter: 2019Q4

REPORT INFORMATION
  Report Type: Spontaneous
  Country: GB (occurrence: GB)
  Receive Date: 20191210
  Receipt Date: 20191210
  Transmission Date: 20200122
  Serious: Yes (Death, Life-Threatening, Hospitalization, Disabling, Congenital Anomaly)
  Sender: FDA-Public Use
  Company Number: GB-ABBVIE-19K-167-3187201-00

PATIENT
  Age: 73 Year
  Sex: Male
  Weight: 117 kg

DRUGS (16)
  1. RITUXIMAB. [Concomitant]
     Active Substance: RITUXIMAB
     Indication: PRODUCT USED FOR UNKNOWN INDICATION
  2. ATORVASTATIN CALCIUM. [Concomitant]
     Active Substance: ATORVASTATIN CALCIUM
     Indication: PRODUCT USED FOR UNKNOWN INDICATION
     Dosage: EACH NIGHT
     Dates: end: 20190904
  3. COTRIMOXAZOLE [Concomitant]
     Active Substance: SULFAMETHOXAZOLE\TRIMETHOPRIM
     Indication: PRODUCT USED FOR UNKNOWN INDICATION
     Dosage: MONDAY, WEDNESDAY AND FRIDAY
     Dates: start: 201602, end: 20190821
  4. VENETOCLAX. [Suspect]
     Active Substance: VENETOCLAX
     Indication: CHRONIC LYMPHOCYTIC LEUKAEMIA
     Dosage: EACH MORNING
     Route: 048
     Dates: start: 20190802, end: 20190808
  5. ACICLOVIR [Concomitant]
     Active Substance: ACYCLOVIR
     Indication: PRODUCT USED FOR UNKNOWN INDICATION
  6. EPLERENONE. [Concomitant]
     Active Substance: EPLERENONE
     Indication: HYPOTENSION
  7. FUROSEMIDE. [Concomitant]
     Active Substance: FUROSEMIDE
     Indication: PRODUCT USED FOR UNKNOWN INDICATION
     Dosage: EACH MORNING
     Dates: end: 20190821
  8. VENETOCLAX. [Suspect]
     Active Substance: VENETOCLAX
     Indication: CHRONIC LYMPHOCYTIC LEUKAEMIA
     Route: 048
     Dates: start: 2019, end: 20190902
  9. PIPERACILLIN SODIUM [Concomitant]
     Active Substance: PIPERACILLIN SODIUM
     Indication: PRODUCT USED FOR UNKNOWN INDICATION
  10. VENETOCLAX. [Suspect]
     Active Substance: VENETOCLAX
     Indication: CHRONIC LYMPHOCYTIC LEUKAEMIA
     Dosage: EACH MORNING
     Route: 048
     Dates: start: 20190809, end: 20190816
  11. RASBURICASE [Concomitant]
     Active Substance: RASBURICASE
     Indication: PRODUCT USED FOR UNKNOWN INDICATION
     Dates: start: 20190802
  12. FEBUXOSTAT. [Suspect]
     Active Substance: FEBUXOSTAT
     Indication: TUMOUR LYSIS SYNDROME
     Dosage: EACH MORNING
     Route: 048
     Dates: start: 20190817, end: 20190902
  13. INSULIN HUMAN ISOPHANE (RDNA) [Concomitant]
     Indication: PRODUCT USED FOR UNKNOWN INDICATION
  14. ALLOPURINOL. [Suspect]
     Active Substance: ALLOPURINOL
     Indication: TUMOUR LYSIS SYNDROME
     Dosage: EACH MORNING
     Route: 048
     Dates: start: 201602, end: 20190815
  15. BISOPROLOL FUMARATE. [Concomitant]
     Active Substance: BISOPROLOL FUMARATE
     Indication: HEART RATE DECREASED
     Dates: end: 20190904
  16. RAMIPRIL. [Concomitant]
     Active Substance: RAMIPRIL
     Indication: HYPOTENSION
     Dates: end: 20190817

REACTIONS (18)
  - Dyspnoea [Fatal]
  - Rash pruritic [Fatal]
  - Skin disorder [Fatal]
  - Acute kidney injury [Fatal]
  - Pancytopenia [Fatal]
  - Oedema peripheral [Fatal]
  - Chest pain [Fatal]
  - Heart rate abnormal [Fatal]
  - Folliculitis [Fatal]
  - Angina pectoris [Fatal]
  - Skin weeping [Fatal]
  - Anaemia [Fatal]
  - Condition aggravated [Fatal]
  - Skin exfoliation [Fatal]
  - Toxic epidermal necrolysis [Fatal]
  - Blister [Fatal]
  - Cardiac failure [Fatal]
  - Erythema [Fatal]

NARRATIVE: CASE EVENT DATE: 2019
